FAERS Safety Report 7039191-5 (Version None)
Quarter: 2010Q4

REPORT INFORMATION
  Report Type: 
  Country: None (occurrence: None)
  Receive Date: 20101012
  Receipt Date: 20101001
  Transmission Date: 20110411
  Serious: Yes (Hospitalization)
  Sender: FDA-Public Use
  Company Number: US-ASTRAZENECA-2010SE46639

PATIENT
  Age: 67 Year
  Sex: Female
  Weight: 99.8 kg

DRUGS (5)
  1. ARIMIDEX [Suspect]
     Indication: BREAST CANCER
     Route: 048
     Dates: start: 20080101
  2. LISINOPRIL [Concomitant]
     Indication: HYPERTENSION
  3. CALCIUM [Concomitant]
     Indication: SUPPLEMENTATION THERAPY
  4. ASPIRIN [Concomitant]
  5. PRILOSEC [Concomitant]

REACTIONS (7)
  - FATIGUE [None]
  - HOT FLUSH [None]
  - INSOMNIA [None]
  - KNEE ARTHROPLASTY [None]
  - OSTEOARTHRITIS [None]
  - OSTEOPENIA [None]
  - VULVOVAGINAL DRYNESS [None]
